FAERS Safety Report 8839554 (Version 1)
Quarter: 2012Q4

REPORT INFORMATION
  Report Type: Spontaneous
  Country: US (occurrence: None)
  Receive Date: 20121012
  Receipt Date: 20121012
  Transmission Date: 20130627
  Serious: Yes (Life-Threatening, Hospitalization)
  Sender: FDA-Public Use
  Company Number: None

PATIENT
  Age: 61 Year
  Sex: Male
  Weight: 59 kg

DRUGS (5)
  1. ERIBULIN [Suspect]
     Indication: HEAD AND NECK CANCER METASTATIC
     Dosage: Eribulin Day 1, 8 Q 21 days IV
     Route: 042
     Dates: start: 20120920
  2. ERIBULIN [Suspect]
     Indication: HEAD AND NECK CANCER METASTATIC
     Dates: start: 20120927
  3. CETUXIMAB [Suspect]
     Indication: HEAD AND NECK CANCER METASTATIC
     Dosage: Cetuximab Day 1, 8, 15 Q21days IV
     Route: 042
     Dates: start: 20120920
  4. CETUXIMAB [Suspect]
     Indication: HEAD AND NECK CANCER METASTATIC
     Dates: start: 20120927
  5. CETUXIMAB [Suspect]
     Indication: HEAD AND NECK CANCER METASTATIC
     Dates: start: 20121004

REACTIONS (4)
  - Pleural effusion [None]
  - Dyspnoea [None]
  - Computerised tomogram thorax abnormal [None]
  - Lung infection [None]
